FAERS Safety Report 5750089-2 (Version None)
Quarter: 2008Q2

REPORT INFORMATION
  Report Type: 
  Country: None (occurrence: None)
  Receive Date: 20080527
  Receipt Date: 20080521
  Transmission Date: 20081010
  Serious: Yes (Hospitalization, Other)
  Sender: FDA-Public Use
  Company Number: AR-PFIZER INC-2006067219

PATIENT
  Sex: Male
  Weight: 82 kg

DRUGS (3)
  1. SU-011,248 [Suspect]
     Indication: RENAL CELL CARCINOMA
     Route: 048
  2. LEVOTHYROXINE SODIUM [Concomitant]
     Route: 048
  3. KLOSIDOL [Concomitant]
     Route: 048
     Dates: start: 20060519, end: 20060519

REACTIONS (2)
  - HEPATIC FAILURE [None]
  - LEFT VENTRICULAR DYSFUNCTION [None]
